FAERS Safety Report 6939631-3 (Version None)
Quarter: 2010Q3

REPORT INFORMATION
  Report Type: 
  Country: None (occurrence: None)
  Receive Date: 20100825
  Receipt Date: 20100823
  Transmission Date: 20110219
  Serious: Yes (Other)
  Sender: FDA-Public Use
  Company Number: CH-BRISTOL-MYERS SQUIBB COMPANY-15241789

PATIENT
  Age: 25 Year
  Sex: Female

DRUGS (5)
  1. ABILIFY [Suspect]
     Indication: SCHIZOPHRENIA
     Route: 048
     Dates: start: 20090101, end: 20100813
  2. AZITHROMYCIN [Concomitant]
  3. ACETYLCYSTEINE [Concomitant]
     Dosage: ACETYLCYSTEIN 600 MG EFFERVESCENT
  4. LOCABIOTAL [Concomitant]
     Dosage: LOCABIOTAL DOSE SPRAY
  5. RESYL [Concomitant]
     Dosage: RESYL PLUS

REACTIONS (2)
  - DYSGEUSIA [None]
  - SINUSITIS [None]
